FAERS Safety Report 5210689-5 (Version None)
Quarter: 2007Q1

REPORT INFORMATION
  Report Type: 
  Country: None (occurrence: None)
  Receive Date: 20070117
  Receipt Date: 20070108
  Transmission Date: 20070707
  Serious: Yes (Hospitalization)
  Sender: FDA-Public Use
  Company Number: US-GLAXOSMITHKLINE-B0453479A

PATIENT
  Age: 64 Year
  Sex: Female
  Weight: 75.8 kg

DRUGS (5)
  1. GW679769 [Suspect]
     Indication: PROPHYLAXIS OF NAUSEA AND VOMITING
     Dates: start: 20061208
  2. DEXAMETHASONE [Suspect]
     Indication: PROPHYLAXIS OF NAUSEA AND VOMITING
     Dosage: 8MG PER DAY
     Route: 042
     Dates: start: 20061208
  3. ONDANSETRON [Suspect]
     Indication: PROPHYLAXIS OF NAUSEA AND VOMITING
     Dosage: 8MG PER DAY
     Route: 048
     Dates: start: 20061208
  4. DOXORUBICIN HCL [Concomitant]
     Indication: BREAST CANCER
     Dosage: 60MG CYCLIC
     Route: 042
     Dates: start: 20061208
  5. CYCLOPHOSPHAMIDE [Concomitant]
     Indication: BREAST CANCER
     Dosage: 600MGM2 CYCLIC
     Route: 042
     Dates: start: 20061208

REACTIONS (6)
  - CHILLS [None]
  - CONFUSIONAL STATE [None]
  - DIZZINESS [None]
  - DYSPNOEA [None]
  - TACHYCARDIA [None]
  - TREMOR [None]
